FAERS Safety Report 20519775 (Version 5)
Quarter: 2023Q1

REPORT INFORMATION
  Report Type: Report from Study
  Country: CA (occurrence: CA)
  Receive Date: 20220225
  Receipt Date: 20230308
  Transmission Date: 20230418
  Serious: Yes (Hospitalization, Other)
  Sender: FDA-Public Use
  Company Number: CA-HORIZON THERAPEUTICS-HZN-2022-001507

PATIENT

DRUGS (4)
  1. PROCYSBI [Suspect]
     Active Substance: CYSTEAMINE BITARTRATE
     Indication: Cystinosis
     Dosage: 450 MG, BID (6 CAPS OF PROCYSBI (TWICE DAILY))
     Route: 065
     Dates: start: 20200605
  2. CYSTAGON [Concomitant]
     Active Substance: CYSTEAMINE BITARTRATE
     Indication: Product used for unknown indication
     Dosage: 1600 MG, QD
  3. PFIZER-BIONTECH COVID-19 VACCINE [Concomitant]
     Active Substance: TOZINAMERAN
     Dosage: 1ST DOSE
  4. PFIZER-BIONTECH COVID-19 VACCINE [Concomitant]
     Active Substance: TOZINAMERAN
     Dosage: 2ND DOSE

REACTIONS (16)
  - Abdominal pain upper [Unknown]
  - Dyspepsia [Unknown]
  - Abdominal discomfort [Unknown]
  - Nausea [Unknown]
  - Kidney infection [Recovered/Resolved]
  - Post-traumatic stress disorder [Unknown]
  - Eye disorder [Not Recovered/Not Resolved]
  - Condition aggravated [Not Recovered/Not Resolved]
  - Gastric disorder [Unknown]
  - Mental disorder [Unknown]
  - Blood potassium decreased [Unknown]
  - Abdominal distension [Not Recovered/Not Resolved]
  - Amnesia [Unknown]
  - Gluten sensitivity [Unknown]
  - Depression [Unknown]
  - Photophobia [Not Recovered/Not Resolved]
